FAERS Safety Report 5700969-9 (Version None)
Quarter: 2008Q2

REPORT INFORMATION
  Report Type: 
  Country: None (occurrence: None)
  Receive Date: 20080410
  Receipt Date: 20080402
  Transmission Date: 20081010
  Serious: Yes (Death)
  Sender: FDA-Public Use
  Company Number: CN-ROCHE-554622

PATIENT
  Age: 3 Year
  Sex: Male

DRUGS (1)
  1. ROCEPHIN [Suspect]
     Dosage: ROUTE: IVGTT, STRENGTH: 0.5G/INJECTION
     Route: 042
     Dates: start: 20080318, end: 20080318

REACTIONS (2)
  - ANAPHYLACTIC SHOCK [None]
  - RASH [None]
